FAERS Safety Report 7659642-2 (Version None)
Quarter: 2011Q3

REPORT INFORMATION
  Report Type: 
  Country: None (occurrence: None)
  Receive Date: 20110805
  Receipt Date: 20110801
  Transmission Date: 20111222
  Serious: No
  Sender: FDA-Public Use
  Company Number: JP-ABBOTT-11P-087-0717683-00

PATIENT
  Sex: Male
  Weight: 57 kg

DRUGS (12)
  1. HUMIRA [Suspect]
     Dates: start: 20110512
  2. TPN [Concomitant]
     Indication: PRODUCT USED FOR UNKNOWN INDICATION
  3. MESALAMINE [Concomitant]
     Indication: PRODUCT USED FOR UNKNOWN INDICATION
     Route: 048
     Dates: start: 20040924
  4. VITAMIN B COMPLEX CAP [Concomitant]
     Indication: PRODUCT USED FOR UNKNOWN INDICATION
  5. NIFEDIPINE [Suspect]
     Indication: BLOOD PRESSURE INCREASED
     Dosage: IN THE MORNING AND EVENING
  6. ASCORBIC ACID [Concomitant]
     Indication: PRODUCT USED FOR UNKNOWN INDICATION
  7. SCOPOLAMINE BUTYLBROMIDE [Concomitant]
     Indication: PRODUCT USED FOR UNKNOWN INDICATION
     Dates: end: 20110406
  8. HUMIRA [Suspect]
     Indication: CROHN'S DISEASE
     Route: 058
     Dates: start: 20101225, end: 20101225
  9. HUMIRA [Suspect]
     Dates: start: 20110106, end: 20110106
  10. FAMOTIDINE [Concomitant]
     Indication: PRODUCT USED FOR UNKNOWN INDICATION
  11. AZATHIOPRINE [Concomitant]
     Indication: PRODUCT USED FOR UNKNOWN INDICATION
     Route: 048
     Dates: start: 20090618
  12. HUMIRA [Suspect]
     Dates: start: 20110120, end: 20110331

REACTIONS (9)
  - SUPRAVENTRICULAR TACHYCARDIA [None]
  - FLUSHING [None]
  - HYPERTENSION [None]
  - PALPITATIONS [None]
  - CONDITION AGGRAVATED [None]
  - DYSPNOEA [None]
  - CORONARY ARTERY DISEASE [None]
  - BLOOD PRESSURE INCREASED [None]
  - CHEST DISCOMFORT [None]
